FAERS Safety Report 6089982-2 (Version None)
Quarter: 2009Q1

REPORT INFORMATION
  Report Type: 
  Country: None (occurrence: None)
  Receive Date: 20090224
  Receipt Date: 20081130
  Transmission Date: 20090719
  Serious: No
  Sender: FDA-Public Use
  Company Number: US-ABBOTT-08P-163-0490223-00

PATIENT
  Sex: Male

DRUGS (1)
  1. SIMCOR [Suspect]
     Indication: DRUG USE FOR UNKNOWN INDICATION
     Dosage: FORM: 500/20 MILLIGRAMS
     Route: 048
     Dates: start: 20081129, end: 20081129

REACTIONS (3)
  - MALAISE [None]
  - NAUSEA [None]
  - PAIN [None]
